FAERS Safety Report 5692863-7 (Version None)
Quarter: 2008Q2

REPORT INFORMATION
  Report Type: 
  Country: None (occurrence: None)
  Receive Date: 20080401
  Receipt Date: 20080315
  Transmission Date: 20081010
  Serious: Yes (Hospitalization)
  Sender: FDA-Public Use
  Company Number: ADE2008-0162

PATIENT
  Sex: Male

DRUGS (5)
  1. CITALOPRAM HYDROBROMIDE [Suspect]
     Indication: DEPRESSION
     Dosage: 10MG,DAILY,PO
     Route: 048
     Dates: end: 20080123
  2. QUININE [Suspect]
     Indication: MUSCLE SPASMS
     Dosage: 200MG,DAILY;PO
     Route: 048
     Dates: end: 20080123
  3. ASPIRIN [Concomitant]
  4. IBUPROFEN [Concomitant]
  5. OMEPRAZOLE [Concomitant]

REACTIONS (1)
  - SUPRAVENTRICULAR TACHYCARDIA [None]
